FAERS Safety Report 12281113 (Version 1)
Quarter: 2016Q2

REPORT INFORMATION
  Report Type: Spontaneous
  Country: US (occurrence: None)
  Receive Date: 20160418
  Receipt Date: 20160418
  Transmission Date: 20160815
  Serious: Yes (Other)
  Sender: FDA-Public Use
  Company Number: None

PATIENT

DRUGS (1)
  1. LUBRIFRESH P.M. [Suspect]
     Active Substance: MINERAL OIL\PETROLATUM
     Route: 047

REACTIONS (1)
  - Product packaging issue [None]
